FAERS Safety Report 23600235 (Version 2)
Quarter: 2024Q1

REPORT INFORMATION
  Report Type: Spontaneous
  Country: US (occurrence: US)
  Receive Date: 20240306
  Receipt Date: 20240306
  Transmission Date: 20240410
  Serious: Yes (Hospitalization)
  Sender: FDA-Public Use
  Company Number: US-AMNEAL-2024-AMRX-00655

PATIENT
  Sex: Male

DRUGS (3)
  1. BACLOFEN [Suspect]
     Active Substance: BACLOFEN
     Indication: Muscle spasticity
     Dosage: 2000 MCG/CC
     Route: 037
  2. BACLOFEN [Suspect]
     Active Substance: BACLOFEN
     Indication: Myelopathy
  3. BACLOFEN [Suspect]
     Active Substance: BACLOFEN
     Indication: Paraplegia

REACTIONS (5)
  - Memory impairment [Unknown]
  - Drug withdrawal syndrome [Unknown]
  - Pain [Unknown]
  - Muscle spasticity [Unknown]
  - Product use issue [Unknown]
